FAERS Safety Report 6531946-6 (Version None)
Quarter: 2009Q4

REPORT INFORMATION
  Report Type: 
  Country: None (occurrence: None)
  Receive Date: 20091223
  Receipt Date: 20090720
  Transmission Date: 20100525
  Serious: Yes (Hospitalization)
  Sender: FDA-Public Use
  Company Number: AMI0013432

PATIENT
  Age: 80 Year
  Sex: Female

DRUGS (1)
  1. TIMOPTIC-XE [Suspect]
     Indication: INTRAOCULAR PRESSURE INCREASED
     Dosage: 2 DRPS DAILY

REACTIONS (6)
  - HALLUCINATION [None]
  - NIGHTMARE [None]
  - OEDEMA PERIPHERAL [None]
  - PRODUCT QUALITY ISSUE [None]
  - RHEUMATOID ARTHRITIS [None]
  - SLEEP TALKING [None]
